FAERS Safety Report 7642085-5 (Version None)
Quarter: 2011Q3

REPORT INFORMATION
  Report Type: 
  Country: None (occurrence: None)
  Receive Date: 20110728
  Receipt Date: 20110720
  Transmission Date: 20111222
  Serious: Yes (Other)
  Sender: FDA-Public Use
  Company Number: US-ELI_LILLY_AND_COMPANY-US201107006073

PATIENT
  Age: 66 Year
  Sex: Female

DRUGS (3)
  1. EFFIENT [Suspect]
     Dosage: 60 MG, LOADING DOSE
     Dates: start: 20110720
  2. EFFIENT [Suspect]
     Dosage: UNK, UNKNOWN
  3. ASPIRIN [Concomitant]

REACTIONS (2)
  - PALLOR [None]
  - THROMBOSIS IN DEVICE [None]
